FAERS Safety Report 8247162-6 (Version None)
Quarter: 2012Q1

REPORT INFORMATION
  Report Type: 
  Country: None (occurrence: None)
  Receive Date: 20120330
  Receipt Date: 20120321
  Transmission Date: 20120608
  Serious: Yes (Other)
  Sender: FDA-Public Use
  Company Number: AU-JNJFOC-20120310817

PATIENT

DRUGS (5)
  1. MAXOLON [Concomitant]
  2. MINIPRESS [Concomitant]
  3. REMICADE [Suspect]
     Indication: PSORIASIS
     Route: 042
     Dates: start: 20080505
  4. METHOTREXATE [Concomitant]
  5. LITHIUM CARBONATE [Concomitant]

REACTIONS (5)
  - EYE DISORDER [None]
  - MUSCULAR WEAKNESS [None]
  - WEIGHT DECREASED [None]
  - DIPLOPIA [None]
  - POLLAKIURIA [None]
